FAERS Safety Report 17599489 (Version 1)
Quarter: 2020Q1

REPORT INFORMATION
  Report Type: Spontaneous
  Country: FR (occurrence: FR)
  Receive Date: 20200330
  Receipt Date: 20200330
  Transmission Date: 20200409
  Serious: Yes (Hospitalization)
  Sender: FDA-Public Use
  Company Number: FR-MYLANLABS-2020M1032144

PATIENT
  Age: 70 Year
  Sex: Male

DRUGS (1)
  1. NIFEDIPINE RETARD MYLAN 20 MG, OMHULDE TABLETTEN [Suspect]
     Active Substance: NIFEDIPINE
     Indication: ANGIOPATHY
     Dosage: UNK
     Route: 048
     Dates: start: 20200123, end: 20200204

REACTIONS (3)
  - Rash [Recovered/Resolved]
  - Toxic skin eruption [Recovered/Resolved]
  - Pancytopenia [Recovered/Resolved]

NARRATIVE: CASE EVENT DATE: 20200203
